FAERS Safety Report 25923434 (Version 1)
Quarter: 2025Q4

REPORT INFORMATION
  Report Type: Report from Study
  Country: IN (occurrence: IN)
  Receive Date: 20251015
  Receipt Date: 20251015
  Transmission Date: 20260117
  Serious: Yes (Other)
  Sender: ROCHE
  Company Number: IN-ROCHE-10000409524

PATIENT
  Age: 43 Year
  Sex: Male

DRUGS (1)
  1. CELLCEPT [Suspect]
     Active Substance: MYCOPHENOLATE MOFETIL
     Indication: Renal transplant
     Dosage: 1-0-1
     Route: 048
     Dates: start: 20160518

REACTIONS (13)
  - Hypertension [Unknown]
  - Rheumatic heart disease [Unknown]
  - Cerebrovascular accident [Unknown]
  - Cerebral infarction [Unknown]
  - Speech disorder [Unknown]
  - Nephropathy [Unknown]
  - Interstitial lung disease [Unknown]
  - Left ventricular dysfunction [Unknown]
  - Haemorrhoids [Unknown]
  - COVID-19 [Unknown]
  - Gastroenteritis [Recovered/Resolved]
  - Acute kidney injury [Recovered/Resolved]
  - Tremor [Unknown]

NARRATIVE: CASE EVENT DATE: 20201128
